FAERS Safety Report 23504106 (Version 2)
Quarter: 2024Q2

REPORT INFORMATION
  Report Type: Spontaneous
  Country: JP (occurrence: JP)
  Receive Date: 20240209
  Receipt Date: 20240424
  Transmission Date: 20240716
  Serious: Yes (Death, Hospitalization, Other)
  Sender: FDA-Public Use
  Company Number: JP-CHUGAI-2024003841

PATIENT
  Age: 66 Year
  Sex: Female
  Weight: 47.6 kg

DRUGS (4)
  1. AVASTIN [Suspect]
     Active Substance: BEVACIZUMAB
     Indication: Non-small cell lung cancer
     Dosage: 720 MILLIGRAM, ONCE/3WEEKS
     Route: 065
     Dates: start: 20240117, end: 20240206
  2. TECENTRIQ [Suspect]
     Active Substance: ATEZOLIZUMAB
     Indication: Non-small cell lung cancer
     Dosage: 1200 MILLIGRAM, ONCE/3WEEKS
     Route: 041
     Dates: start: 20240117, end: 20240206
  3. CARBOPLATIN [Concomitant]
     Active Substance: CARBOPLATIN
     Indication: Non-small cell lung cancer
     Dosage: UNK
     Dates: start: 202401
  4. PACLITAXEL [Concomitant]
     Active Substance: PACLITAXEL
     Indication: Non-small cell lung cancer
     Dosage: UNK
     Dates: start: 202401

REACTIONS (3)
  - Cytokine release syndrome [Not Recovered/Not Resolved]
  - Febrile neutropenia [Unknown]
  - Lung adenocarcinoma [Fatal]

NARRATIVE: CASE EVENT DATE: 20240131
